FAERS Safety Report 4330182-1 (Version None)
Quarter: 2004Q1

REPORT INFORMATION
  Report Type: 
  Country: None (occurrence: None)
  Receive Date: 20040329
  Receipt Date: 20040315
  Transmission Date: 20041129
  Serious: Yes (Hospitalization)
  Sender: FDA-Public Use
  Company Number: 04P-163-0253642-00

PATIENT
  Age: 45 Year
  Sex: Female

DRUGS (9)
  1. ERYTHROMYCIN [Suspect]
     Indication: PROPHYLAXIS
  2. DOXORUBICIN HCL [Suspect]
     Indication: CHEMOTHERAPY
     Dosage: 50 MG
  3. DOCETAXEL           (DOCETAXEL) [Suspect]
     Indication: CHEMOTHERAPY
     Dosage: 75 MG
  4. GRANISETRON [Concomitant]
  5. DEXAMETHASONE [Concomitant]
  6. OMEPRAZOLE [Concomitant]
  7. MORPHINE SULFATE [Concomitant]
  8. IBUPROFEN [Concomitant]
  9. METOCLOPRAMIDE [Concomitant]

REACTIONS (15)
  - ABDOMINAL DISTENSION [None]
  - BREAST CANCER RECURRENT [None]
  - CLOSTRIDIUM COLITIS [None]
  - DRUG INTERACTION [None]
  - DRUG TOXICITY [None]
  - FEBRILE NEUTROPENIA [None]
  - HAEMATEMESIS [None]
  - HAEMODYNAMIC INSTABILITY [None]
  - JAUNDICE CHOLESTATIC [None]
  - METASTASES TO BONE [None]
  - METASTASES TO CENTRAL NERVOUS SYSTEM [None]
  - MOUTH ULCERATION [None]
  - RASH ERYTHEMATOUS [None]
  - RASH MACULO-PAPULAR [None]
  - VOMITING [None]
